FAERS Safety Report 8338143-2 (Version None)
Quarter: 2012Q2

REPORT INFORMATION
  Report Type: 
  Country: None (occurrence: None)
  Receive Date: 20120504
  Receipt Date: 20120423
  Transmission Date: 20120825
  Serious: Yes (Other)
  Sender: FDA-Public Use
  Company Number: US-JNJFOC-20120412174

PATIENT

DRUGS (1)
  1. TRETINOIN [Suspect]
     Indication: ACNE
     Route: 061

REACTIONS (9)
  - NASOPHARYNGITIS [None]
  - APPLICATION SITE ERYTHEMA [None]
  - APPLICATION SITE DRYNESS [None]
  - APPLICATION SITE IRRITATION [None]
  - HEADACHE [None]
  - ADVERSE EVENT [None]
  - APPLICATION SITE DERMATITIS [None]
  - APPLICATION SITE EXFOLIATION [None]
  - APPLICATION SITE PAIN [None]
